FAERS Safety Report 8057622-9 (Version None)
Quarter: 2012Q1

REPORT INFORMATION
  Report Type: 
  Country: None (occurrence: None)
  Receive Date: 20120120
  Receipt Date: 20120113
  Transmission Date: 20120608
  Serious: No
  Sender: FDA-Public Use
  Company Number: US-BIOGENIDEC-2011BI025942

PATIENT
  Age: 43 Year
  Sex: Male

DRUGS (3)
  1. AVONEX [Concomitant]
     Indication: MULTIPLE SCLEROSIS
     Route: 030
  2. BENADRYL [Concomitant]
     Indication: PREMEDICATION
  3. TYSABRI [Suspect]
     Indication: MULTIPLE SCLEROSIS
     Route: 042
     Dates: start: 20110219

REACTIONS (7)
  - ALOPECIA [None]
  - LOSS OF CONSCIOUSNESS [None]
  - NAUSEA [None]
  - FATIGUE [None]
  - HEADACHE [None]
  - BLOOD PRESSURE DECREASED [None]
  - COGNITIVE DISORDER [None]
